FAERS Safety Report 25546403 (Version 1)
Quarter: 2025Q3

REPORT INFORMATION
  Report Type: Spontaneous
  Country: US (occurrence: US)
  Receive Date: 20250713
  Receipt Date: 20250713
  Transmission Date: 20251021
  Serious: No
  Sender: SANOFI AVENTIS
  Company Number: US-SA-2025SA192681

PATIENT
  Sex: Female
  Weight: 54.55 kg

DRUGS (1)
  1. DUPIXENT [Suspect]
     Active Substance: DUPILUMAB
     Indication: Dermatitis atopic
     Dosage: 300 MG, QOW
     Route: 058

REACTIONS (7)
  - Dermatitis contact [Unknown]
  - Rash pruritic [Unknown]
  - Dermatitis [Unknown]
  - Pain of skin [Unknown]
  - Skin exfoliation [Unknown]
  - Rash [Unknown]
  - Acne [Recovering/Resolving]
